FAERS Safety Report 4545074-2 (Version None)
Quarter: 2004Q4

REPORT INFORMATION
  Report Type: 
  Country: None (occurrence: None)
  Receive Date: 20041222
  Receipt Date: 20040907
  Transmission Date: 20050328
  Serious: Yes (Life-Threatening)
  Sender: FDA-Public Use
  Company Number: US_0409105301

PATIENT
  Age: 66 Year
  Sex: Male

DRUGS (2)
  1. HUMALOG [Suspect]
     Dosage: 65 U DAY
  2. LANTUS [Concomitant]

REACTIONS (1)
  - HYPOGLYCAEMIC COMA [None]
